FAERS Safety Report 20233508 (Version 1)
Quarter: 2021Q4

REPORT INFORMATION
  Report Type: Spontaneous
  Country: US (occurrence: US)
  Receive Date: 20211227
  Receipt Date: 20211227
  Transmission Date: 20220303
  Serious: No
  Sender: FDA-Public Use
  Company Number: US-BAUSCH-BL-2021-042209

PATIENT
  Age: 43 Year
  Sex: Female

DRUGS (2)
  1. ALTRENO [Suspect]
     Active Substance: TRETINOIN
     Indication: Prophylaxis
     Dosage: EVERY NIGHT ON FACE
     Route: 061
     Dates: start: 2021
  2. ALTRENO [Suspect]
     Active Substance: TRETINOIN
     Dosage: EVERY NIGHT ON FACE
     Route: 061
     Dates: start: 202112

REACTIONS (3)
  - Accidental exposure to product [Unknown]
  - Product physical issue [Unknown]
  - Product container issue [Unknown]

NARRATIVE: CASE EVENT DATE: 20211201
